FAERS Safety Report 22231803 (Version 1)
Quarter: 2023Q2

REPORT INFORMATION
  Report Type: Spontaneous
  Country: US (occurrence: None)
  Receive Date: 20230420
  Receipt Date: 20230420
  Transmission Date: 20230722
  Serious: No
  Sender: FDA-Public Use
  Company Number: US-ROCHE-3204059

PATIENT
  Sex: Female
  Weight: 54.480 kg

DRUGS (7)
  1. ESBRIET [Suspect]
     Active Substance: PIRFENIDONE
     Indication: Idiopathic pulmonary fibrosis
     Dosage: NO
     Route: 048
     Dates: start: 20221001, end: 20221007
  2. ESBRIET [Suspect]
     Active Substance: PIRFENIDONE
     Dosage: NO
     Route: 048
     Dates: start: 20221008, end: 20221014
  3. ESBRIET [Suspect]
     Active Substance: PIRFENIDONE
     Dosage: NO
     Route: 048
     Dates: start: 20221015, end: 20221016
  4. ESBRIET [Suspect]
     Active Substance: PIRFENIDONE
     Dosage: YES
     Route: 048
     Dates: start: 20221016
  5. TYVASO [Concomitant]
     Active Substance: TREPROSTINIL
     Indication: Pulmonary hypertension
     Dosage: 12 BREATHS PER SESSION, 4 SESSIONS PER DAY
     Route: 055
  6. ALBUTEROL [Concomitant]
     Active Substance: ALBUTEROL
     Dosage: 90MCG PER ACTUATION AS NEEDED
     Route: 055
  7. TRELEGY ELLIPTA [Concomitant]
     Active Substance: FLUTICASONE FUROATE\UMECLIDINIUM BROMIDE\VILANTEROL TRIFENATATE
     Dosage: 200MCG/62.5MCG/25MCG
     Route: 055

REACTIONS (6)
  - Decreased appetite [Not Recovered/Not Resolved]
  - Fatigue [Recovering/Resolving]
  - Abdominal pain upper [Not Recovered/Not Resolved]
  - Gait disturbance [Unknown]
  - Asthenia [Recovering/Resolving]
  - Asthenia [Recovering/Resolving]

NARRATIVE: CASE EVENT DATE: 20221001
